FAERS Safety Report 18079178 (Version 1)
Quarter: 2020Q3

REPORT INFORMATION
  Report Type: Other
  Country: CZ (occurrence: CZ)
  Receive Date: 20200728
  Receipt Date: 20200728
  Transmission Date: 20201103
  Serious: Yes (Other)
  Sender: FDA-Public Use
  Company Number: CZ-ROCHE-2649374

PATIENT
  Age: 70 Year
  Sex: Female

DRUGS (3)
  1. GEMCITABINE. [Suspect]
     Active Substance: GEMCITABINE
     Indication: OVARIAN CANCER
     Route: 065
  2. BEVACIZUMAB. [Suspect]
     Active Substance: BEVACIZUMAB
     Indication: OVARIAN CANCER
     Route: 065
  3. CARBOPLATIN. [Suspect]
     Active Substance: CARBOPLATIN
     Indication: OVARIAN CANCER
     Route: 065

REACTIONS (3)
  - Carbohydrate antigen 125 increased [Recovering/Resolving]
  - Myelosuppression [Unknown]
  - Neurotoxicity [Unknown]
